FAERS Safety Report 4983281-5 (Version None)
Quarter: 2006Q2

REPORT INFORMATION
  Report Type: 
  Country: None (occurrence: None)
  Receive Date: 20060419
  Receipt Date: 20060406
  Transmission Date: 20061013
  Serious: Yes (Other)
  Sender: FDA-Public Use
  Company Number: 2006044040

PATIENT
  Age: 28 Year
  Sex: Male
  Weight: 53 kg

DRUGS (2)
  1. SULFASALAZINE [Suspect]
     Indication: CROHN'S DISEASE
     Dosage: 3000 MG (1000 MG, 3 IN 1 D), ORAL
     Route: 048
     Dates: start: 20060121, end: 20060224
  2. ALL OTHER THERAPEUTIC PRODUCTS [Concomitant]

REACTIONS (5)
  - COUGH [None]
  - DRUG HYPERSENSITIVITY [None]
  - HEADACHE [None]
  - HEPATIC FUNCTION ABNORMAL [None]
  - RASH [None]
